FAERS Safety Report 7467438-X (Version None)
Quarter: 2011Q2

REPORT INFORMATION
  Report Type: 
  Country: None (occurrence: None)
  Receive Date: 20110509
  Receipt Date: 20110124
  Transmission Date: 20111010
  Serious: Yes (Life-Threatening, Hospitalization, Other)
  Sender: FDA-Public Use
  Company Number: US-ALEXION-A201001450

PATIENT
  Age: 18 Year
  Sex: Female
  Weight: 73.2 kg

DRUGS (4)
  1. SENNA                              /00142201/ [Concomitant]
     Indication: CONSTIPATION
  2. SOLIRIS [Suspect]
     Indication: NEUROMYELITIS OPTICA
     Dosage: 600 MG, QW
     Route: 042
     Dates: start: 20100909, end: 20100930
  3. SOLIRIS [Suspect]
     Dosage: 900 MG, Q2W
     Route: 042
     Dates: start: 20101007
  4. VITAMIN A [Concomitant]

REACTIONS (7)
  - MYALGIA [None]
  - ACUTE LUNG INJURY [None]
  - LUNG INFILTRATION [None]
  - MENINGITIS MENINGOCOCCAL [None]
  - MENINGOCOCCAL BACTERAEMIA [None]
  - HYPOTENSION [None]
  - INTERNATIONAL NORMALISED RATIO INCREASED [None]
